FAERS Safety Report 9316950 (Version 1)
Quarter: 2013Q2

REPORT INFORMATION
  Report Type: Spontaneous
  Country: US (occurrence: US)
  Receive Date: 20130530
  Receipt Date: 20130530
  Transmission Date: 20140414
  Serious: No
  Sender: FDA-Public Use
  Company Number: US-NOVEN-12US004538

PATIENT
  Age: 26 Year
  Sex: Female

DRUGS (9)
  1. DAYTRANA [Suspect]
     Indication: ATTENTION DEFICIT/HYPERACTIVITY DISORDER
     Dosage: 2 X 30MG, QD
     Route: 062
  2. LAMICTAL [Concomitant]
     Route: 048
  3. HYOSCYAMINE [Concomitant]
     Route: 048
  4. METHYLPHENIDATE [Concomitant]
     Indication: ATTENTION DEFICIT/HYPERACTIVITY DISORDER
     Dosage: 2 TABLETS Q AM
     Route: 048
  5. DEPLIN [Concomitant]
     Indication: DEPRESSION
     Route: 048
  6. ASPIRIN [Concomitant]
     Dosage: UNK
     Route: 048
  7. BIRTH CONTROL PILLS [Concomitant]
     Route: 048
  8. TRAZODONE [Concomitant]
     Route: 048
  9. PROZAC [Concomitant]
     Route: 048

REACTIONS (3)
  - Wrong technique in drug usage process [Not Recovered/Not Resolved]
  - Off label use [Not Recovered/Not Resolved]
  - No adverse event [None]
